FAERS Safety Report 5740637-0 (Version None)
Quarter: 2008Q2

REPORT INFORMATION
  Report Type: 
  Country: None (occurrence: None)
  Receive Date: 20080516
  Receipt Date: 20080513
  Transmission Date: 20081010
  Serious: Yes (Hospitalization)
  Sender: FDA-Public Use
  Company Number: B0519368A

PATIENT
  Age: 62 Year
  Sex: Male

DRUGS (7)
  1. ZYBAN [Suspect]
     Indication: DRUG USE FOR UNKNOWN INDICATION
     Dosage: 300MG PER DAY
     Route: 048
     Dates: start: 20080307, end: 20080404
  2. ZOLPIDEM TARTRATE [Concomitant]
  3. COZAAR [Concomitant]
  4. ADALAT [Concomitant]
  5. PANACOD [Concomitant]
  6. SIMVASTATIN [Concomitant]
  7. CENTYL K [Concomitant]

REACTIONS (3)
  - AGGRESSION [None]
  - EMOTIONAL DISTRESS [None]
  - IRRITABILITY [None]
